FAERS Safety Report 6705250-7 (Version None)
Quarter: 2010Q2

REPORT INFORMATION
  Report Type: 
  Country: None (occurrence: None)
  Receive Date: 20100430
  Receipt Date: 20100419
  Transmission Date: 20101027
  Serious: Yes (Hospitalization, Disabling, Other)
  Sender: FDA-Public Use
  Company Number: US-ELI_LILLY_AND_COMPANY-US200911005920

PATIENT
  Sex: Male
  Weight: 97.052 kg

DRUGS (7)
  1. ZYPREXA [Suspect]
     Dosage: 20 MG, DAILY (1/D)
     Dates: start: 20031101, end: 20050901
  2. ZYPREXA [Suspect]
     Dosage: 5 MG, DAILY (1/D)
  3. ZYPREXA [Suspect]
     Dosage: 2.5 MG, QOD
     Dates: start: 20040305
  4. ZYPREXA [Suspect]
     Dosage: 5 MG, 2/D
     Route: 048
  5. PAXIL [Concomitant]
  6. NEURONTIN [Concomitant]
     Dosage: 300 MG, UNK
  7. ETHANOL [Concomitant]

REACTIONS (27)
  - ALANINE AMINOTRANSFERASE INCREASED [None]
  - ASPARTATE AMINOTRANSFERASE INCREASED [None]
  - BLOOD ALKALINE PHOSPHATASE INCREASED [None]
  - BLOOD TRIGLYCERIDES INCREASED [None]
  - CHOLELITHIASIS [None]
  - DIABETES MELLITUS [None]
  - DIARRHOEA [None]
  - DRY SKIN [None]
  - GALLBLADDER CHOLESTEROLOSIS [None]
  - GALLBLADDER DISORDER [None]
  - HEADACHE [None]
  - HEPATIC STEATOSIS [None]
  - HYPERLIPIDAEMIA [None]
  - HYPOAESTHESIA [None]
  - INFECTION [None]
  - INSOMNIA [None]
  - METABOLIC DISORDER [None]
  - MYOCARDIAL INFARCTION [None]
  - NAUSEA [None]
  - NEPHROLITHIASIS [None]
  - OBESITY [None]
  - PAIN [None]
  - POOR PERIPHERAL CIRCULATION [None]
  - SKIN CHAPPED [None]
  - SKIN LESION [None]
  - SWELLING [None]
  - WEIGHT INCREASED [None]
